FAERS Safety Report 9457304 (Version 1)
Quarter: 2013Q3

REPORT INFORMATION
  Report Type: Spontaneous
  Country: CH (occurrence: CH)
  Receive Date: 20130814
  Receipt Date: 20130814
  Transmission Date: 20140515
  Serious: Yes (Hospitalization, Other)
  Sender: FDA-Public Use
  Company Number: CH-009507513-1308CHE002807

PATIENT
  Age: 53 Year
  Sex: Male

DRUGS (7)
  1. REMERON [Suspect]
     Indication: DEPRESSION
     Dosage: 45 MG, QD
     Route: 048
     Dates: end: 201303
  2. COMBIVIR [Suspect]
     Indication: HIV INFECTION
     Dosage: STRENGTH 300/150MG, BID, DAILY DOSE: 600/300MG
     Dates: start: 20080811, end: 201303
  3. VIREAD [Concomitant]
     Indication: HIV INFECTION
     Dosage: 245 MG, QD
     Route: 048
     Dates: start: 20051231
  4. KALETRA [Concomitant]
     Indication: HIV INFECTION
     Dosage: STRENGTH: 50/200 MG, QID, DAILY DOSE: 200/800 MG
     Route: 048
     Dates: start: 20080811
  5. BACTRIM [Concomitant]
     Indication: HIV INFECTION
     Dosage: 800/160 MG, TIW
     Route: 048
     Dates: start: 20130313
  6. DEROXAT [Concomitant]
     Indication: DEPRESSION
     Dosage: 20 MG, BID
     Route: 048
  7. STILNOX [Concomitant]
     Indication: SLEEP DISORDER
     Dosage: 10 MG, PRN
     Route: 048

REACTIONS (3)
  - Pancytopenia [Recovering/Resolving]
  - Aplastic anaemia [Recovering/Resolving]
  - Bone marrow failure [Unknown]
